FAERS Safety Report 8101989-X (Version None)
Quarter: 2012Q1

REPORT INFORMATION
  Report Type: 
  Country: None (occurrence: None)
  Receive Date: 20120131
  Receipt Date: 20120118
  Transmission Date: 20120608
  Serious: Yes (Hospitalization)
  Sender: FDA-Public Use
  Company Number: IT-ELI_LILLY_AND_COMPANY-IT201201005663

PATIENT
  Age: 66 Year
  Sex: Female

DRUGS (4)
  1. FORTEO [Suspect]
     Dosage: UNK
     Dates: start: 20111008
  2. ELOPRAM                            /00582602/ [Concomitant]
  3. DEPAKENE [Concomitant]
  4. XANAX [Concomitant]

REACTIONS (2)
  - BACK DISORDER [None]
  - BACK PAIN [None]
